FAERS Safety Report 17162116 (Version 1)
Quarter: 2019Q4

REPORT INFORMATION
  Report Type: Spontaneous
  Country: NL (occurrence: NL)
  Receive Date: 20191217
  Receipt Date: 20191217
  Transmission Date: 20200122
  Serious: Yes (Congenital Anomaly, Other)
  Sender: FDA-Public Use
  Company Number: NL-AUROBINDO-AUR-APL-2019-104983

PATIENT
  Sex: Male
  Weight: 3 kg

DRUGS (3)
  1. MELATONIN [Suspect]
     Active Substance: MELATONIN
     Indication: INSOMNIA
     Dosage: 2 MILLIGRAM, ONCE A DAY (1D0.5)
     Route: 064
  2. LEVOTHYROXINE. [Concomitant]
     Active Substance: LEVOTHYROXINE
     Indication: PRODUCT USED FOR UNKNOWN INDICATION
     Dosage: 75 MICROGRAM, ONCE A DAY (1DD175MCG)
     Route: 065
  3. CITALOPRAM 20 MG FILM COATED TABLETS [Suspect]
     Active Substance: CITALOPRAM HYDROBROMIDE
     Indication: DEPRESSION
     Dosage: 20 MILLIGRAM, ONCE A DAY (1DD1)
     Route: 064

REACTIONS (4)
  - Talipes [Not Recovered/Not Resolved]
  - Congenital hydronephrosis [Unknown]
  - Maternal exposure during pregnancy [Unknown]
  - Congenital hepatomegaly [Recovered/Resolved]
